FAERS Safety Report 15413232 (Version 1)
Quarter: 2018Q3

REPORT INFORMATION
  Report Type: Spontaneous
  Country: FR (occurrence: FR)
  Receive Date: 20180921
  Receipt Date: 20180921
  Transmission Date: 20181010
  Serious: Yes (Hospitalization, Other)
  Sender: FDA-Public Use
  Company Number: FR-PFIZER INC-2016265957

PATIENT
  Age: 47 Year
  Sex: Male
  Weight: 65 kg

DRUGS (6)
  1. FLUOROURACIL ACCORD [Suspect]
     Active Substance: FLUOROURACIL
     Dosage: 4865 MG, CYCLIC
     Route: 042
     Dates: start: 20160321, end: 20160321
  2. FLUOROURACIL ACCORD [Suspect]
     Active Substance: FLUOROURACIL
     Indication: SQUAMOUS CELL CARCINOMA OF THE HYPOPHARYNX
     Dosage: UNK, CYCLIC
     Route: 042
     Dates: start: 20160226, end: 20160226
  3. DOCETAXEL HOSPIRA [Suspect]
     Active Substance: DOCETAXEL
     Dosage: 97.5 MG, CYCLIC
     Route: 042
     Dates: start: 20160321, end: 20160321
  4. CARBOPLATINE HOSPIRA [Suspect]
     Active Substance: CARBOPLATIN
     Indication: SQUAMOUS CELL CARCINOMA OF THE HYPOPHARYNX
     Dosage: UNK, CYCLIC
     Route: 042
     Dates: start: 20160226, end: 20160226
  5. CARBOPLATINE HOSPIRA [Suspect]
     Active Substance: CARBOPLATIN
     Dosage: 130 MG, CYCLIC
     Route: 042
     Dates: start: 20160321, end: 20160321
  6. DOCETAXEL HOSPIRA [Suspect]
     Active Substance: DOCETAXEL
     Indication: SQUAMOUS CELL CARCINOMA OF THE HYPOPHARYNX
     Dosage: UNK, CYCLIC
     Route: 042
     Dates: start: 20160226, end: 20160226

REACTIONS (9)
  - Febrile neutropenia [Recovered/Resolved]
  - Faeces soft [Recovered/Resolved]
  - Vomiting [Recovered/Resolved]
  - Abdominal pain [Recovered/Resolved]
  - Blood potassium decreased [Unknown]
  - Blood sodium decreased [Unknown]
  - Diarrhoea [Recovered/Resolved]
  - Agranulocytosis [Recovered/Resolved]
  - Infectious colitis [Recovered/Resolved]

NARRATIVE: CASE EVENT DATE: 20160326
